FAERS Safety Report 7868685-5 (Version None)
Quarter: 2011Q4

REPORT INFORMATION
  Report Type: 
  Country: None (occurrence: None)
  Receive Date: 20111028
  Receipt Date: 20101217
  Transmission Date: 20120403
  Serious: No
  Sender: FDA-Public Use
  Company Number: US-AMGEN-USASP2010007168

PATIENT
  Sex: Female

DRUGS (1)
  1. ENBREL [Suspect]
     Indication: ANKYLOSING SPONDYLITIS
     Dates: start: 20050301

REACTIONS (8)
  - COUGH [None]
  - FATIGUE [None]
  - ALVEOLAR OSTEITIS [None]
  - ASTHENIA [None]
  - DRY EYE [None]
  - EYE PAIN [None]
  - THERAPEUTIC RESPONSE DECREASED [None]
  - DYSPNOEA [None]
